APPROVED DRUG PRODUCT: CLOBEX
Active Ingredient: CLOBETASOL PROPIONATE
Strength: 0.05%
Dosage Form/Route: SPRAY;TOPICAL
Application: N021835 | Product #001 | TE Code: AT
Applicant: GALDERMA LABORATORIES LP
Approved: Oct 27, 2005 | RLD: Yes | RS: Yes | Type: RX